FAERS Safety Report 21567954 (Version 2)
Quarter: 2023Q4

REPORT INFORMATION
  Report Type: Spontaneous
  Country: US (occurrence: US)
  Receive Date: 20221108
  Receipt Date: 20231218
  Transmission Date: 20240110
  Serious: Yes (Hospitalization, Other)
  Sender: FDA-Public Use
  Company Number: US-PFIZER INC-202201282637

PATIENT
  Sex: Male

DRUGS (1)
  1. PAXLOVID [Suspect]
     Active Substance: NIRMATRELVIR\RITONAVIR
     Indication: COVID-19 treatment
     Dosage: UNK (3 OR 4 FULL DOSAGES)
     Dates: end: 20221103

REACTIONS (5)
  - Dyspnoea [Recovered/Resolved]
  - Anaphylactic shock [Unknown]
  - Decreased appetite [Unknown]
  - Throat tightness [Unknown]
  - Dysphagia [Unknown]
